FAERS Safety Report 9611568 (Version 1)
Quarter: 2013Q4

REPORT INFORMATION
  Report Type: Report from Study
  Country: MX (occurrence: MX)
  Receive Date: 20131010
  Receipt Date: 20131010
  Transmission Date: 20140711
  Serious: Yes (Death)
  Sender: FDA-Public Use
  Company Number: PHHY2013MX113400

PATIENT
  Age: 74 Year
  Sex: Male

DRUGS (1)
  1. EXFORGE HCT [Suspect]
     Indication: HYPERTENSION
     Dosage: 1 DF (320MG VALS/ 10MG AMLO/ 25MG HYDR), DAILY
     Route: 048
     Dates: start: 201108

REACTIONS (2)
  - Infarction [Fatal]
  - Pain [Fatal]
